FAERS Safety Report 9707773 (Version 1)
Quarter: 2013Q4

REPORT INFORMATION
  Report Type: Spontaneous
  Country: IT (occurrence: None)
  Receive Date: 20131121
  Receipt Date: 20131121
  Transmission Date: 20140711
  Serious: Yes (Other)
  Sender: FDA-Public Use
  Company Number: 2017939

PATIENT
  Age: 21 Year
  Sex: 0

DRUGS (1)
  1. (VANCOMYCIN HYDROCHLORIDE) [Suspect]
     Indication: PERITONITIS
     Dosage: 70 ML MILLILITRE(S), TOTAL
     Route: 042
     Dates: start: 20131024, end: 20131024

REACTIONS (1)
  - Raynaud^s phenomenon [None]
